FAERS Safety Report 9400338 (Version 1)
Quarter: 2013Q3

REPORT INFORMATION
  Report Type: Spontaneous
  Country: IN (occurrence: IN)
  Receive Date: 20130715
  Receipt Date: 20130715
  Transmission Date: 20140515
  Serious: Yes (Other)
  Sender: FDA-Public Use
  Company Number: PHHY2013IN072550

PATIENT
  Age: 55 Year
  Sex: Male

DRUGS (2)
  1. 5-FLUOROURACIL [Suspect]
     Indication: COLON CANCER
     Dosage: 6600 MG/M2, UNK
  2. OXALIPLATIN [Concomitant]
     Indication: COLON CANCER
     Dosage: 245 MG/M2, UNK

REACTIONS (1)
  - Leukoencephalopathy [Recovering/Resolving]
